FAERS Safety Report 4435679-1 (Version None)
Quarter: 2004Q3

REPORT INFORMATION
  Report Type: 
  Country: None (occurrence: None)
  Receive Date: 20040726
  Receipt Date: 20040412
  Transmission Date: 20050211
  Serious: No
  Sender: FDA-Public Use
  Company Number: USA040464749

PATIENT
  Sex: Female

DRUGS (4)
  1. FORTEO [Suspect]
     Indication: OSTEOPOROSIS
     Dates: start: 20040324
  2. PREMARIN [Concomitant]
  3. SYNTHROID [Concomitant]
  4. MYCELIN [Concomitant]

REACTIONS (5)
  - HEADACHE [None]
  - LARYNGITIS [None]
  - NASAL CONGESTION [None]
  - NASOPHARYNGITIS [None]
  - SINUS HEADACHE [None]
